FAERS Safety Report 4949769-8 (Version None)
Quarter: 2006Q1

REPORT INFORMATION
  Report Type: 
  Country: None (occurrence: None)
  Receive Date: 20060315
  Receipt Date: 20060224
  Transmission Date: 20060701
  Serious: Yes (Hospitalization, Other)
  Sender: FDA-Public Use
  Company Number: US200602004944

PATIENT
  Age: 70 Year
  Sex: Female
  Weight: 56.2 kg

DRUGS (2)
  1. FORTEO [Suspect]
     Indication: OSTEOPOROSIS
     Dosage: 20 UG/DAY, SUBCUTANEOUS
     Route: 058
     Dates: start: 20050615
  2. FORTEO [Concomitant]

REACTIONS (2)
  - GALLBLADDER DISORDER [None]
  - NAUSEA [None]
